FAERS Safety Report 19485438 (Version 1)
Quarter: 2021Q3

REPORT INFORMATION
  Report Type: Spontaneous
  Country: AU (occurrence: AU)
  Receive Date: 20210702
  Receipt Date: 20210702
  Transmission Date: 20211014
  Serious: Yes (Other)
  Sender: FDA-Public Use
  Company Number: AU-UCBSA-2021031419

PATIENT
  Age: 53 Year
  Sex: Female

DRUGS (4)
  1. DICLOFENAC [Concomitant]
     Active Substance: DICLOFENAC
     Indication: PRODUCT USED FOR UNKNOWN INDICATION
     Dosage: UNK
  2. CIMZIA [Suspect]
     Active Substance: CERTOLIZUMAB PEGOL
     Indication: PRODUCT USED FOR UNKNOWN INDICATION
     Dosage: UNK
  3. PREDNISONE. [Concomitant]
     Active Substance: PREDNISONE
     Indication: PRODUCT USED FOR UNKNOWN INDICATION
     Dosage: UNK
  4. CEPHALEXIN MONOHYDRATE. [Concomitant]
     Active Substance: CEPHALEXIN MONOHYDRATE
     Indication: PRODUCT USED FOR UNKNOWN INDICATION
     Dosage: UNK

REACTIONS (12)
  - Pleural effusion [Unknown]
  - Bite [Unknown]
  - Diarrhoea [Unknown]
  - Hypertension [Unknown]
  - Ligament injury [Unknown]
  - Back pain [Unknown]
  - Dysgeusia [Unknown]
  - Urinary tract infection [Unknown]
  - Vulvovaginal candidiasis [Unknown]
  - Chest pain [Unknown]
  - Nausea [Unknown]
  - Tooth fracture [Unknown]
